FAERS Safety Report 23880868 (Version 1)
Quarter: 2024Q2

REPORT INFORMATION
  Report Type: Spontaneous
  Country: FR (occurrence: None)
  Receive Date: 20240521
  Receipt Date: 20240521
  Transmission Date: 20240715
  Serious: Yes (Other)
  Sender: FDA-Public Use
  Company Number: 2024A118690

PATIENT
  Age: 77 Year
  Sex: Female

DRUGS (13)
  1. BYETTA [Suspect]
     Active Substance: EXENATIDE
     Indication: Diabetes mellitus
     Dosage: ONE INJECTION PER DAY OF BYETTA 5UG FOR OVER 30 YEARS
     Route: 058
     Dates: start: 1990
  2. ASPIRIN [Concomitant]
     Active Substance: ASPIRIN
  3. SIMVASTATIN [Concomitant]
     Active Substance: SIMVASTATIN
  4. EZETIMIBE [Concomitant]
     Active Substance: EZETIMIBE
  5. HYDROCHLOROTHIAZIDE\IRBESARTAN [Concomitant]
     Active Substance: HYDROCHLOROTHIAZIDE\IRBESARTAN
     Dosage: 300MG/12.5 MG
  6. BISOPROLOL [Concomitant]
     Active Substance: BISOPROLOL\BISOPROLOL FUMARATE
  7. NICARDIPINE HYDROCHLORIDE [Concomitant]
     Active Substance: NICARDIPINE HYDROCHLORIDE
  8. ZOPICLONE [Concomitant]
     Active Substance: ZOPICLONE
  9. ZOPICLONE [Concomitant]
     Active Substance: ZOPICLONE
  10. LANSOPRAZOLE [Concomitant]
     Active Substance: LANSOPRAZOLE
  11. LANSOPRAZOLE [Concomitant]
     Active Substance: LANSOPRAZOLE
  12. CHOLECALCIFEROL [Concomitant]
     Active Substance: CHOLECALCIFEROL
  13. CHOLECALCIFEROL [Concomitant]
     Active Substance: CHOLECALCIFEROL

REACTIONS (1)
  - Pericarditis [Unknown]

NARRATIVE: CASE EVENT DATE: 20190701
